FAERS Safety Report 8911698 (Version 3)
Quarter: 2013Q3

REPORT INFORMATION
  Report Type: Spontaneous
  Country: US (occurrence: US)
  Receive Date: 20121116
  Receipt Date: 20130726
  Transmission Date: 20140515
  Serious: Yes (Hospitalization, Disabling, Other)
  Sender: FDA-Public Use
  Company Number: US-BAYER-2012-119298

PATIENT
  Age: 57 Year
  Sex: Female
  Weight: 86.17 kg

DRUGS (9)
  1. ALEVE CAPLET/TABLET,MIDOL EXTENDED RELIEF CAPLET [Suspect]
     Dosage: UNK
     Dates: start: 20121018
  2. LYRICA [Suspect]
     Indication: FIBROMYALGIA
     Dosage: 200 MG, TID
     Route: 048
     Dates: start: 2012, end: 201304
  3. NORVASC [Concomitant]
     Indication: HYPERTENSION
     Dosage: 10 MG, QD
  4. PRILOSEC [Concomitant]
     Indication: GASTRIC PH DECREASED
     Dosage: 20 MG, BID
     Route: 048
  5. FOLIC ACID [Concomitant]
     Dosage: 1 MG, QD
  6. LEVOTHYROXINE [Concomitant]
     Indication: HYPOTHYROIDISM
     Dosage: 75 MCG/24HR, QD
     Route: 048
  7. VITAMIN B12 NOS [Concomitant]
     Dosage: UNK UNK, Q1MON
     Route: 030
  8. AMBIEN [Concomitant]
     Dosage: UNK
  9. PROTONIX [Concomitant]
     Indication: GASTROOESOPHAGEAL REFLUX DISEASE
     Dosage: UNK

REACTIONS (22)
  - Agitation [Recovered/Resolved]
  - Chest pain [None]
  - Fall [Unknown]
  - Pain [Not Recovered/Not Resolved]
  - Unevaluable event [None]
  - Drug ineffective [None]
  - Balance disorder [None]
  - Fall [None]
  - Chills [None]
  - Fall [None]
  - Dyspnoea [None]
  - Neuropathy peripheral [Not Recovered/Not Resolved]
  - Abasia [Unknown]
  - Infection [None]
  - Local swelling [None]
  - Tremor [None]
  - Gastroenteritis viral [None]
  - Vision blurred [None]
  - Pain in extremity [None]
  - Joint injury [Unknown]
  - Fall [Unknown]
  - Back pain [Unknown]
